FAERS Safety Report 7101383-4 (Version None)
Quarter: 2010Q4

REPORT INFORMATION
  Report Type: 
  Country: None (occurrence: None)
  Receive Date: 20101115
  Receipt Date: 20101111
  Transmission Date: 20110411
  Serious: Yes (Hospitalization, Other)
  Sender: FDA-Public Use
  Company Number: US-BRISTOL-MYERS SQUIBB COMPANY-15372642

PATIENT
  Age: 75 Year
  Sex: Male
  Weight: 93 kg

DRUGS (5)
  1. COUMADIN [Suspect]
     Indication: ATRIAL FIBRILLATION
     Dates: start: 20020701, end: 20091208
  2. DIOVAN [Concomitant]
  3. MAXIDEX [Concomitant]
  4. AMRINONE [Concomitant]
  5. ASPIRIN [Concomitant]

REACTIONS (2)
  - ARRHYTHMIA [None]
  - EPISTAXIS [None]
